FAERS Safety Report 9246068 (Version 2)
Quarter: 2013Q2

REPORT INFORMATION
  Report Type: Spontaneous
  Country: ZA (occurrence: ZA)
  Receive Date: 20130422
  Receipt Date: 20130426
  Transmission Date: 20140414
  Serious: Yes (Hospitalization, Other)
  Sender: FDA-Public Use
  Company Number: ZA-PFIZER INC-2013121248

PATIENT
  Age: 21 Year
  Sex: Female

DRUGS (5)
  1. GEODON [Suspect]
     Indication: BIPOLAR DISORDER
     Dosage: 20 MG, 1X/DAY
     Route: 048
     Dates: start: 201210, end: 20130414
  2. ZYPREXA [Suspect]
     Indication: BIPOLAR I DISORDER
     Dosage: UNK
     Route: 048
     Dates: start: 20130415
  3. LAMICTAL [Concomitant]
     Indication: TEMPORAL LOBE EPILEPSY
     Dosage: UNK
  4. RIVATRIL [Concomitant]
     Indication: TEMPORAL LOBE EPILEPSY
     Dosage: UNK
  5. AKINETON FOR INJECTION [Concomitant]
     Indication: MUSCLE SPASMS
     Dosage: UNK
     Dates: start: 20130412

REACTIONS (7)
  - Dyskinesia [Recovered/Resolved]
  - Convulsion [Recovered/Resolved]
  - Headache [Recovered/Resolved]
  - Palpitations [Recovered/Resolved]
  - Dizziness [Recovered/Resolved]
  - Tremor [Recovered/Resolved]
  - Drug intolerance [Recovered/Resolved]
